FAERS Safety Report 17574977 (Version 11)
Quarter: 2021Q4

REPORT INFORMATION
  Report Type: Spontaneous
  Country: US (occurrence: US)
  Receive Date: 20200324
  Receipt Date: 20211008
  Transmission Date: 20220304
  Serious: Yes (Hospitalization, Other)
  Sender: FDA-Public Use
  Company Number: US-TEVA-2020-US-1209806

PATIENT
  Age: 75 Year
  Sex: Male
  Weight: 85.91 kg

DRUGS (20)
  1. VALSARTAN [Suspect]
     Active Substance: VALSARTAN
     Indication: Hypertension
     Route: 048
     Dates: start: 20150716, end: 20151016
  2. VALSARTAN [Suspect]
     Active Substance: VALSARTAN
     Indication: Hypertension
     Route: 048
     Dates: start: 20151019, end: 20160119
  3. HYDROCHLOROTHIAZIDE\VALSARTAN [Suspect]
     Active Substance: HYDROCHLOROTHIAZIDE\VALSARTAN
     Indication: Hypertension
     Route: 065
  4. VALSARTAN [Suspect]
     Active Substance: VALSARTAN
     Indication: Hypertension
     Route: 048
     Dates: start: 20160116, end: 20180922
  5. DIOVAN [Suspect]
     Active Substance: VALSARTAN
     Indication: Hypertension
     Route: 048
     Dates: start: 20090804, end: 2014
  6. DIOVAN [Suspect]
     Active Substance: VALSARTAN
     Route: 048
  7. DIOVAN [Suspect]
     Active Substance: VALSARTAN
     Route: 048
  8. VALSARTAN [Suspect]
     Active Substance: VALSARTAN
     Indication: Hypertension
     Route: 065
     Dates: start: 2014, end: 2018
  9. VALSARTAN [Suspect]
     Active Substance: VALSARTAN
     Indication: Hypertension
     Route: 048
     Dates: start: 20140925, end: 20150225
  10. TAMSULOSIN HYDROCHLORIDE [Concomitant]
     Active Substance: TAMSULOSIN HYDROCHLORIDE
     Indication: Prostatomegaly
     Route: 065
     Dates: start: 20100505
  11. SIMVASTATIN [Concomitant]
     Active Substance: SIMVASTATIN
     Indication: Hyperlipidaemia
     Route: 065
     Dates: start: 2000
  12. FINASTERIDE [Concomitant]
     Active Substance: FINASTERIDE
     Indication: Prostatomegaly
     Route: 065
     Dates: start: 2000
  13. FINASTERIDE [Concomitant]
     Active Substance: FINASTERIDE
     Indication: Anticoagulant therapy
  14. PANTOPRAZOLE SODIUM [Concomitant]
     Active Substance: PANTOPRAZOLE SODIUM
     Indication: Gastrooesophageal reflux disease
     Route: 065
     Dates: start: 2000
  15. ASPIRIN [Concomitant]
     Active Substance: ASPIRIN
     Indication: Anticoagulant therapy
     Route: 048
     Dates: start: 2000
  16. VITAMIN D [Concomitant]
     Active Substance: VITAMIN D NOS
     Indication: General physical health deterioration
     Dates: start: 2015
  17. HERBALS\TURMERIC [Concomitant]
     Active Substance: HERBALS\TURMERIC
     Indication: General physical health deterioration
  18. VITAMIN B COMPLEX [Concomitant]
     Active Substance: CYANOCOBALAMIN\DEXPANTHENOL\NIACINAMIDE\PYRIDOXINE HYDROCHLORIDE\RIBOFLAVIN 5^-PHOSPHATE SODIUM\THIA
     Indication: General physical health deterioration
     Dates: start: 2015
  19. METRONIDAZOLE [Concomitant]
     Active Substance: METRONIDAZOLE
     Dosage: CREAM, APPLY THIN FILM TO AFFECTED AREA AM AND PM
  20. PREDNISONE [Concomitant]
     Active Substance: PREDNISONE
     Dosage: PREDNISONE; TABLET, 4 PILLS FOR 4 DAYS, 3 PILLS FOR 4 DAYS, 2 PILLS FOR 4 DAYS, 1 PILL FOR 4 DAYS

REACTIONS (4)
  - Rectal adenocarcinoma [Recovered/Resolved]
  - Colon cancer [Unknown]
  - Haematochezia [Unknown]
  - Frequent bowel movements [Unknown]
